FAERS Safety Report 7797595-7 (Version None)
Quarter: 2011Q4

REPORT INFORMATION
  Report Type: 
  Country: None (occurrence: None)
  Receive Date: 20111003
  Receipt Date: 20101022
  Transmission Date: 20120403
  Serious: No
  Sender: FDA-Public Use
  Company Number: AEUSA201000400

PATIENT
  Sex: Female

DRUGS (1)
  1. HYPERRHO [Suspect]
     Indication: PROPHYLAXIS AGAINST RH ISOIMMUNISATION
     Dosage: ;IM
     Route: 030
     Dates: start: 20101020, end: 20101020

REACTIONS (2)
  - SYRINGE ISSUE [None]
  - PRODUCT QUALITY ISSUE [None]
